FAERS Safety Report 18660097 (Version 1)
Quarter: 2020Q4

REPORT INFORMATION
  Report Type: Spontaneous
  Country: IN (occurrence: IN)
  Receive Date: 20201223
  Receipt Date: 20201223
  Transmission Date: 20210114
  Serious: Yes (Death, Life-Threatening, Other)
  Sender: FDA-Public Use
  Company Number: IN-SLATE RUN PHARMACEUTICALS-20IN000352

PATIENT

DRUGS (6)
  1. TACROLIMUS. [Concomitant]
     Active Substance: TACROLIMUS
     Indication: IMMUNOSUPPRESSION
     Dosage: DOSES WERE REDUCED TO HALF
     Route: 065
  2. TEICOPLANIN [Interacting]
     Active Substance: TEICOPLANIN
     Indication: BRONCHOPULMONARY ASPERGILLOSIS
     Route: 065
  3. VORICONAZOLE. [Suspect]
     Active Substance: VORICONAZOLE
     Indication: BRONCHOPULMONARY ASPERGILLOSIS
     Route: 065
  4. AMPHOTERICIN B, LIPOSOME [Concomitant]
     Active Substance: AMPHOTERICIN B
     Indication: BRONCHOPULMONARY ASPERGILLOSIS
     Route: 065
  5. MEROPENEM. [Interacting]
     Active Substance: MEROPENEM
     Indication: BRONCHOPULMONARY ASPERGILLOSIS
     Route: 065
  6. MYCOPHENOLATE MOFETIL. [Concomitant]
     Active Substance: MYCOPHENOLATE MOFETIL
     Indication: IMMUNOSUPPRESSION
     Dosage: DOSES WERE REDUCED TO HALF
     Route: 065

REACTIONS (10)
  - Acute allograft nephropathy [Unknown]
  - Enterococcal infection [Fatal]
  - Tachypnoea [Unknown]
  - Hypoxia [Unknown]
  - Condition aggravated [Unknown]
  - Drug level decreased [Unknown]
  - Mucormycosis [Fatal]
  - Hypotension [Unknown]
  - Bronchopulmonary aspergillosis [Fatal]
  - Drug interaction [Unknown]
